FAERS Safety Report 22115367 (Version 1)
Quarter: 2023Q1

REPORT INFORMATION
  Report Type: Spontaneous
  Country: DE (occurrence: DE)
  Receive Date: 20230320
  Receipt Date: 20230320
  Transmission Date: 20230418
  Serious: Yes (Other)
  Sender: FDA-Public Use
  Company Number: DE-BAYER-2023A033823

PATIENT
  Age: 79 Year
  Sex: Male

DRUGS (2)
  1. XARELTO [Suspect]
     Active Substance: RIVAROXABAN
     Indication: Atrial fibrillation
     Dosage: 20 MG
     Route: 048
     Dates: end: 20230306
  2. XARELTO [Suspect]
     Active Substance: RIVAROXABAN
     Indication: Obstructive sleep apnoea syndrome
     Route: 048

REACTIONS (11)
  - Arrhythmia [Recovered/Resolved]
  - Hip surgery [Unknown]
  - Hernia repair [Unknown]
  - Testicular disorder [Unknown]
  - Pain in extremity [Unknown]
  - Haematoma [Unknown]
  - Snoring [Recovered/Resolved]
  - Fluid retention [Unknown]
  - Swelling [Not Recovered/Not Resolved]
  - Product dose omission issue [Unknown]
  - Off label use [Unknown]

NARRATIVE: CASE EVENT DATE: 20220601
